FAERS Safety Report 10732437 (Version 3)
Quarter: 2015Q1

REPORT INFORMATION
  Report Type: Spontaneous
  Country: US (occurrence: US)
  Receive Date: 20150123
  Receipt Date: 20150320
  Transmission Date: 20150721
  Serious: No
  Sender: FDA-Public Use
  Company Number: US-PFIZER INC-2015026534

PATIENT
  Age: 37 Year
  Sex: Female

DRUGS (4)
  1. PEPTO-BISMOL [Concomitant]
     Active Substance: BISMUTH SUBSALICYLATE\CALCIUM CARBONATE
     Indication: ABDOMINAL DISCOMFORT
  2. PROTONIX [Concomitant]
     Active Substance: PANTOPRAZOLE SODIUM
     Indication: ABDOMINAL DISCOMFORT
  3. FLAGYL [Suspect]
     Active Substance: METRONIDAZOLE\METRONIDAZOLE HYDROCHLORIDE
     Indication: HELICOBACTER INFECTION
     Dosage: UNK
     Route: 048
  4. FLAGYL [Suspect]
     Active Substance: METRONIDAZOLE\METRONIDAZOLE HYDROCHLORIDE
     Dosage: 500 MG, 3X/DAY
     Route: 048
     Dates: start: 201401

REACTIONS (17)
  - Tooth disorder [Unknown]
  - Feeling abnormal [Unknown]
  - Vision blurred [Unknown]
  - Tremor [Unknown]
  - Abdominal pain upper [Unknown]
  - Rash pustular [Unknown]
  - Malaise [Unknown]
  - Dyspnoea [Unknown]
  - Visual impairment [Unknown]
  - Crying [Unknown]
  - Candida infection [Unknown]
  - Oral fungal infection [Unknown]
  - Nervousness [Unknown]
  - Tinnitus [Unknown]
  - Memory impairment [Unknown]
  - Oral candidiasis [Unknown]
  - Enamel anomaly [Unknown]

NARRATIVE: CASE EVENT DATE: 20130122
